FAERS Safety Report 13503742 (Version 1)
Quarter: 2017Q2

REPORT INFORMATION
  Report Type: Spontaneous
  Country: US (occurrence: US)
  Receive Date: 20170502
  Receipt Date: 20170502
  Transmission Date: 20170830
  Serious: Yes (Hospitalization)
  Sender: FDA-Public Use
  Company Number: US-CELGENEUS-USA-20170410005

PATIENT
  Age: 88 Year
  Sex: Female
  Weight: 43.13 kg

DRUGS (4)
  1. POMALYST [Suspect]
     Active Substance: POMALIDOMIDE
     Indication: PLASMA CELL MYELOMA
     Dosage: 2 MILLIGRAM
     Route: 048
     Dates: start: 201504
  2. BUMETANIDE. [Concomitant]
     Active Substance: BUMETANIDE
     Indication: URINE OUTPUT
     Route: 065
     Dates: start: 201704
  3. MIRTAZAPINE. [Concomitant]
     Active Substance: MIRTAZAPINE
     Indication: APPETITE DISORDER
     Route: 065
     Dates: start: 201704
  4. POMALYST [Suspect]
     Active Substance: POMALIDOMIDE
     Dosage: 4 MILLIGRAM
     Route: 048
     Dates: start: 201703

REACTIONS (1)
  - Dehydration [Not Recovered/Not Resolved]

NARRATIVE: CASE EVENT DATE: 20170424
